FAERS Safety Report 11579581 (Version 1)
Quarter: 2015Q3

REPORT INFORMATION
  Report Type: Spontaneous
  Country: DE (occurrence: DE)
  Receive Date: 20150930
  Receipt Date: 20150930
  Transmission Date: 20151125
  Serious: Yes (Hospitalization)
  Sender: FDA-Public Use
  Company Number: DE-TEVA-596375GER

PATIENT
  Age: 62 Year
  Sex: Male

DRUGS (13)
  1. MELPERONE [Interacting]
     Active Substance: MELPERONE
     Route: 048
     Dates: start: 20141223, end: 20141229
  2. ZYPREXA [Interacting]
     Active Substance: OLANZAPINE
     Route: 048
     Dates: start: 20141215
  3. MELPERONE [Interacting]
     Active Substance: MELPERONE
     Route: 048
     Dates: start: 20141219
  4. REMERGIL [Interacting]
     Active Substance: MIRTAZAPINE
     Route: 048
     Dates: end: 20141211
  5. REMERGIL [Interacting]
     Active Substance: MIRTAZAPINE
     Route: 048
     Dates: start: 20141219, end: 20141229
  6. TERAZID [Concomitant]
     Dates: end: 20141218
  7. TAVOR [Concomitant]
     Active Substance: LORAZEPAM
     Route: 048
  8. REMERGIL [Interacting]
     Active Substance: MIRTAZAPINE
     Route: 048
     Dates: start: 20141212, end: 20141218
  9. REMERGIL [Interacting]
     Active Substance: MIRTAZAPINE
     Route: 048
     Dates: start: 20141230
  10. TERAZID [Concomitant]
     Dates: start: 20141219
  11. MELPERONE [Interacting]
     Active Substance: MELPERONE
     Route: 048
     Dates: start: 20141220, end: 20141222
  12. FLUVOXAMINE [Suspect]
     Active Substance: FLUVOXAMINE
     Route: 048
  13. ZYPREXA [Interacting]
     Active Substance: OLANZAPINE
     Route: 048
     Dates: start: 20141216, end: 20141222

REACTIONS (2)
  - Urinary hesitation [Recovered/Resolved]
  - Drug interaction [Unknown]

NARRATIVE: CASE EVENT DATE: 20141223
